FAERS Safety Report 23939260 (Version 1)
Quarter: 2024Q2

REPORT INFORMATION
  Report Type: Other
  Country: PT (occurrence: PT)
  Receive Date: 20240605
  Receipt Date: 20240605
  Transmission Date: 20240716
  Serious: Yes (Hospitalization, Other)
  Sender: FDA-Public Use
  Company Number: PT-DEXPHARM-2024-1518

PATIENT
  Age: 69 Year
  Sex: Female

DRUGS (10)
  1. INDAPAMIDE [Concomitant]
     Active Substance: INDAPAMIDE
  2. RAMIPRIL [Concomitant]
     Active Substance: RAMIPRIL
  3. ATENOLOL [Concomitant]
     Active Substance: ATENOLOL
  4. METFORMIN [Concomitant]
     Active Substance: METFORMIN HYDROCHLORIDE
  5. GLICLAZIDE [Concomitant]
     Active Substance: GLICLAZIDE
  6. SIMVASTATIN [Interacting]
     Active Substance: SIMVASTATIN
  7. ASPIRIN [Concomitant]
     Active Substance: ASPIRIN
  8. AMOXICILLIN [Suspect]
     Active Substance: AMOXICILLIN
     Indication: Helicobacter infection
  9. CLARITHROMYCIN [Interacting]
     Active Substance: CLARITHROMYCIN
     Indication: Helicobacter infection
  10. OMEPRAZOLE [Interacting]
     Active Substance: DONEPEZIL HYDROCHLORIDE\OMEPRAZOLE\OMEPRAZOLE MAGNESIUM
     Indication: Helicobacter infection

REACTIONS (2)
  - Rhabdomyolysis [Unknown]
  - Drug interaction [Unknown]
